FAERS Safety Report 7307448-6 (Version None)
Quarter: 2011Q1

REPORT INFORMATION
  Report Type: 
  Country: None (occurrence: None)
  Receive Date: 20110119
  Receipt Date: 20101220
  Transmission Date: 20110831
  Serious: Yes (Other)
  Sender: FDA-Public Use
  Company Number: A-US2010-41709

PATIENT
  Age: 88 Year
  Sex: Female

DRUGS (3)
  1. CALCIUM CHANNEL BLOCKERS [Concomitant]
  2. TRACLEER [Suspect]
     Indication: PULMONARY ARTERIAL HYPERTENSION
     Dosage: 62.5 MG, BID, ORAL
     Route: 048
     Dates: start: 20101015, end: 20101101
  3. REVATIO [Concomitant]

REACTIONS (4)
  - DYSPNOEA [None]
  - ANXIETY [None]
  - DIARRHOEA [None]
  - PNEUMONIA PRIMARY ATYPICAL [None]
